FAERS Safety Report 24886860 (Version 1)
Quarter: 2025Q1

REPORT INFORMATION
  Report Type: Spontaneous
  Country: CN (occurrence: CN)
  Receive Date: 20250126
  Receipt Date: 20250126
  Transmission Date: 20250408
  Serious: Yes (Hospitalization, Other)
  Sender: OXFORD PHARMACEUTICALS, LLC
  Company Number: CN-Oxford Pharmaceuticals, LLC-2169844

PATIENT
  Age: 3 Year
  Sex: Female

DRUGS (2)
  1. LEVETIRACETAM [Suspect]
     Active Substance: LEVETIRACETAM
     Indication: PCDH19 gene-related epilepsy
  2. VALPROATE SODIUM [Suspect]
     Active Substance: VALPROATE SODIUM

REACTIONS (2)
  - Therapy partial responder [Unknown]
  - Off label use [Unknown]
